FAERS Safety Report 9717078 (Version 2)
Quarter: 2013Q4

REPORT INFORMATION
  Report Type: Spontaneous
  Country: US (occurrence: US)
  Receive Date: 20131127
  Receipt Date: 20131127
  Transmission Date: 20140711
  Serious: No
  Sender: FDA-Public Use
  Company Number: US-GILEAD-2009-0020048

PATIENT
  Sex: Female
  Weight: 65.77 kg

DRUGS (10)
  1. LETAIRIS [Suspect]
     Indication: PULMONARY ARTERIAL HYPERTENSION
     Route: 048
     Dates: start: 20080208
  2. REVATIO [Concomitant]
  3. FUROSEMIDE [Concomitant]
  4. SPIRONOLACTONE [Concomitant]
  5. COREG CR [Concomitant]
  6. SOTALOL HCL [Concomitant]
  7. DIOVAN [Concomitant]
  8. LIBRAX [Concomitant]
  9. METHSCOPOLAMINE [Concomitant]
  10. LOMOTIL [Concomitant]

REACTIONS (1)
  - Anaemia [Not Recovered/Not Resolved]
